FAERS Safety Report 4395973-X (Version None)
Quarter: 2004Q3

REPORT INFORMATION
  Report Type: 
  Country: None (occurrence: None)
  Receive Date: 20040707
  Receipt Date: 20040623
  Transmission Date: 20050211
  Serious: Yes (Hospitalization)
  Sender: FDA-Public Use
  Company Number: 2004213136AU

PATIENT
  Age: 63 Year
  Sex: Female
  Weight: 72 kg

DRUGS (5)
  1. AROMASIN [Suspect]
     Indication: BREAST CANCER METASTATIC
     Dosage: 25 MG, QD, ORAL
     Route: 048
     Dates: start: 20031001
  2. BONEFOS (CLODRONATE DISODIUM) [Concomitant]
  3. DI-GESIC (DEXTROPROPOXYPHENE) [Concomitant]
  4. ZANTAC [Concomitant]
  5. ROFECOXIB [Concomitant]

REACTIONS (4)
  - ATRIAL FIBRILLATION [None]
  - ELECTROCARDIOGRAM ST SEGMENT DEPRESSION [None]
  - HYPERTENSION [None]
  - SINUS TACHYCARDIA [None]
